FAERS Safety Report 5233651-5 (Version None)
Quarter: 2007Q1

REPORT INFORMATION
  Report Type: 
  Country: None (occurrence: None)
  Receive Date: 20070208
  Receipt Date: 20070130
  Transmission Date: 20070707
  Serious: Yes (Other)
  Sender: FDA-Public Use
  Company Number: US-JNJFOC-20061203781

PATIENT
  Age: 71 Year
  Sex: Female
  Weight: 77.11 kg

DRUGS (16)
  1. REMICADE [Suspect]
     Route: 042
  2. REMICADE [Suspect]
     Indication: CROHN'S DISEASE
     Route: 042
  3. METOPROLOL [Concomitant]
     Indication: HYPERTENSION
  4. ENALAPRIL MALEATE [Concomitant]
     Indication: HYPERTENSION
  5. FUROSEMIDE [Concomitant]
     Indication: HYPERTENSION
  6. DYNACIRC [Concomitant]
     Indication: HYPERTENSION
  7. 6-MP [Concomitant]
  8. ASPIRIN [Concomitant]
  9. AMARYL [Concomitant]
  10. VITAMIN D [Concomitant]
  11. VITAMIN B6 [Concomitant]
  12. FISH OIL [Concomitant]
  13. FOLIC ACID [Concomitant]
  14. CRESTOR [Concomitant]
  15. METONEX [Concomitant]
  16. ASPIRIN [Concomitant]

REACTIONS (6)
  - BLOOD PRESSURE INCREASED [None]
  - CARPAL TUNNEL SYNDROME [None]
  - FATIGUE [None]
  - HYPOAESTHESIA [None]
  - NEUROPATHY PERIPHERAL [None]
  - POLYNEUROPATHY [None]
